FAERS Safety Report 19672806 (Version 2)
Quarter: 2021Q3

REPORT INFORMATION
  Report Type: Report from Study
  Country: HN (occurrence: HN)
  Receive Date: 20210809
  Receipt Date: 20210823
  Transmission Date: 20211014
  Serious: Yes (Other)
  Sender: FDA-Public Use
  Company Number: NVSC2021HN178097

PATIENT
  Sex: Female
  Weight: 52.61 kg

DRUGS (7)
  1. GALVUS MET [Suspect]
     Active Substance: METFORMIN HYDROCHLORIDE\VILDAGLIPTIN
     Indication: DIABETES MELLITUS
     Dosage: UNK, QD, 50/1000 MG
     Route: 065
     Dates: start: 202103
  2. VITAMIN C [Concomitant]
     Active Substance: ASCORBIC ACID
     Indication: IMMUNODEFICIENCY
     Dosage: 200 MG
     Route: 065
     Dates: start: 20210606
  3. CARBAMAZEPINE. [Suspect]
     Active Substance: CARBAMAZEPINE
     Indication: DEPRESSION
     Dosage: 200 MG, QD
     Route: 065
     Dates: start: 20210706
  4. IRBESARTAN. [Suspect]
     Active Substance: IRBESARTAN
     Indication: PRODUCT USED FOR UNKNOWN INDICATION
     Dosage: 150 MG, QD
     Route: 065
  5. NPH INSULIN [Concomitant]
     Active Substance: INSULIN BEEF
     Indication: DIABETES MELLITUS
     Dosage: 40U DURING MORNING AND 30U AT NIGHT
     Route: 065
     Dates: start: 202008
  6. ATENOL N [Concomitant]
     Indication: HYPERTENSION
     Dosage: 50 MG, QD
     Route: 065
  7. NOZEPAM [Concomitant]
     Active Substance: OXAZEPAM
     Indication: OXYGEN THERAPY
     Dosage: 800 MG, QD
     Route: 065
     Dates: start: 20210606

REACTIONS (9)
  - Asphyxia [Unknown]
  - Anxiety [Unknown]
  - Hypoaesthesia [Unknown]
  - Depressed mood [Unknown]
  - Facial paralysis [Unknown]
  - Dizziness [Unknown]
  - Tongue discomfort [Recovering/Resolving]
  - Emotional distress [Unknown]
  - Headache [Recovering/Resolving]
